FAERS Safety Report 9269680 (Version 1)
Quarter: 2013Q2

REPORT INFORMATION
  Report Type: Spontaneous
  Country: US (occurrence: US)
  Receive Date: 20130503
  Receipt Date: 20130503
  Transmission Date: 20140414
  Serious: Yes (Other)
  Sender: FDA-Public Use
  Company Number: US-TEVA-401302USA

PATIENT
  Age: 31 Year
  Sex: Female

DRUGS (3)
  1. PARAGARD 380A [Suspect]
     Indication: CONTRACEPTION
     Route: 015
     Dates: start: 201110
  2. BIRTH CONTROL PILLS [Concomitant]
  3. METFORMIN [Concomitant]
     Indication: INSULIN RESISTANCE

REACTIONS (5)
  - Vaginal haemorrhage [Not Recovered/Not Resolved]
  - Transfusion [Recovered/Resolved]
  - Metrorrhagia [Not Recovered/Not Resolved]
  - Fatigue [Not Recovered/Not Resolved]
  - Metrorrhagia [Not Recovered/Not Resolved]
